FAERS Safety Report 5232146-2 (Version None)
Quarter: 2007Q1

REPORT INFORMATION
  Report Type: 
  Country: None (occurrence: None)
  Receive Date: 20061201
  Receipt Date: 20060823
  Transmission Date: 20070707
  Serious: No
  Sender: FDA-Public Use
  Company Number: US200607004638

PATIENT
  Age: 73 Year
  Sex: Female

DRUGS (14)
  1. CYMBALTA [Suspect]
     Indication: FIBROMYALGIA
     Dosage: SEE IMAGE
     Dates: start: 20060713, end: 20060802
  2. CYMBALTA [Suspect]
     Indication: FIBROMYALGIA
     Dosage: SEE IMAGE
     Dates: start: 20060803, end: 20060815
  3. PAXIL [Concomitant]
  4. METFORMIN HCL [Concomitant]
  5. LISINOPRIL AND HYDROCHLOROTHIAZIDE [Concomitant]
  6. PROVIGIL [Concomitant]
  7. TRICOR [Concomitant]
  8. MORPHINE [Concomitant]
  9. ASPIRIN [Concomitant]
  10. MULTIVITAMINS (ASCORBIC ACD, ERGOCALCIFEROL, FOLIC ACID, NICOTINAMIDE, [Concomitant]
  11. CALTRATE (CALCIUM CARBONATE) [Concomitant]
  12. BENADRYL (AMMONIUM CHLORIDE, DIPHENHYDRAMINE HYDROCHLORIDE, MENTHOL, S [Concomitant]
  13. TYLENOL /USA/ (PARACETAMOL) [Concomitant]
  14. PRANDIN ^NOVO NORDISK^ (REPAGLINIDE) [Concomitant]

REACTIONS (13)
  - BLOOD GLUCOSE INCREASED [None]
  - CONSTIPATION [None]
  - DIABETES MELLITUS [None]
  - FALL [None]
  - HICCUPS [None]
  - HUNGER [None]
  - HYPOGLYCAEMIA [None]
  - LIMB INJURY [None]
  - MALAISE [None]
  - NAUSEA [None]
  - PSYCHOMOTOR HYPERACTIVITY [None]
  - TREMOR [None]
  - VOMITING [None]
